FAERS Safety Report 4372056-6 (Version None)
Quarter: 2004Q2

REPORT INFORMATION
  Report Type: 
  Country: None (occurrence: None)
  Receive Date: 20040602
  Receipt Date: 20040514
  Transmission Date: 20050107
  Serious: Yes (Hospitalization)
  Sender: FDA-Public Use
  Company Number: DSA_24449_2004

PATIENT
  Age: 66 Year
  Sex: Female

DRUGS (6)
  1. ENALAPRIL MALEATE [Suspect]
     Indication: HYPERTENSIVE CARDIOMYOPATHY
     Dosage: 5 MG QD PO
     Route: 048
     Dates: start: 20040417, end: 20040423
  2. LASIX [Suspect]
     Indication: CARDIAC FAILURE
     Dosage: 25 MG QD PO
     Route: 048
     Dates: start: 20040417, end: 20040423
  3. ACETAMINOPHEN [Suspect]
     Indication: BACK PAIN
     Dosage: DF UNK PO
     Route: 048
     Dates: start: 20040421, end: 20040424
  4. LORMETAZEPAM [Concomitant]
  5. COUMADIN [Concomitant]
  6. SURICLONE (CLEXANE) [Concomitant]

REACTIONS (4)
  - BACK PAIN [None]
  - GRANULOCYTOPENIA [None]
  - NORMOCHROMIC NORMOCYTIC ANAEMIA [None]
  - WHITE BLOOD CELL COUNT DECREASED [None]
